FAERS Safety Report 8565074 (Version 8)
Quarter: 2013Q4

REPORT INFORMATION
  Report Type: Spontaneous
  Country: US (occurrence: US)
  Receive Date: 20120516
  Receipt Date: 20131022
  Transmission Date: 20140711
  Serious: Yes (Hospitalization, Other)
  Sender: FDA-Public Use
  Company Number: US-ASTRAZENECA-2012SE29536

PATIENT
  Age: 45 Year
  Sex: Male
  Weight: 108.9 kg

DRUGS (87)
  1. SEROQUEL [Suspect]
     Indication: BIPOLAR DISORDER
     Route: 048
     Dates: start: 201102
  2. SEROQUEL [Suspect]
     Indication: MENTAL DISORDER
     Route: 048
     Dates: start: 201102
  3. SEROQUEL [Suspect]
     Indication: DEPRESSION
     Route: 048
     Dates: start: 201102
  4. SEROQUEL [Suspect]
     Indication: SLEEP DISORDER
     Route: 048
     Dates: start: 201102
  5. SEROQUEL [Suspect]
     Indication: MOOD SWINGS
     Route: 048
     Dates: start: 201102
  6. SEROQUEL [Suspect]
     Indication: BIPOLAR DISORDER
     Route: 048
     Dates: start: 201205
  7. SEROQUEL [Suspect]
     Indication: MENTAL DISORDER
     Route: 048
     Dates: start: 201205
  8. SEROQUEL [Suspect]
     Indication: DEPRESSION
     Route: 048
     Dates: start: 201205
  9. SEROQUEL [Suspect]
     Indication: SLEEP DISORDER
     Route: 048
     Dates: start: 201205
  10. SEROQUEL [Suspect]
     Indication: MOOD SWINGS
     Route: 048
     Dates: start: 201205
  11. SEROQUEL [Suspect]
     Indication: BIPOLAR DISORDER
     Route: 048
     Dates: start: 201205
  12. SEROQUEL [Suspect]
     Indication: MENTAL DISORDER
     Route: 048
     Dates: start: 201205
  13. SEROQUEL [Suspect]
     Indication: DEPRESSION
     Route: 048
     Dates: start: 201205
  14. SEROQUEL [Suspect]
     Indication: SLEEP DISORDER
     Route: 048
     Dates: start: 201205
  15. SEROQUEL [Suspect]
     Indication: MOOD SWINGS
     Route: 048
     Dates: start: 201205
  16. SEROQUEL [Suspect]
     Indication: BIPOLAR DISORDER
     Route: 048
     Dates: start: 20070118
  17. SEROQUEL [Suspect]
     Indication: MENTAL DISORDER
     Route: 048
     Dates: start: 20070118
  18. SEROQUEL [Suspect]
     Indication: DEPRESSION
     Route: 048
     Dates: start: 20070118
  19. SEROQUEL [Suspect]
     Indication: SLEEP DISORDER
     Route: 048
     Dates: start: 20070118
  20. SEROQUEL [Suspect]
     Indication: MOOD SWINGS
     Route: 048
     Dates: start: 20070118
  21. SEROQUEL [Suspect]
     Indication: BIPOLAR DISORDER
     Route: 048
  22. SEROQUEL [Suspect]
     Indication: MENTAL DISORDER
     Route: 048
  23. SEROQUEL [Suspect]
     Indication: DEPRESSION
     Route: 048
  24. SEROQUEL [Suspect]
     Indication: SLEEP DISORDER
     Route: 048
  25. SEROQUEL [Suspect]
     Indication: MOOD SWINGS
     Route: 048
  26. SEROQUEL [Suspect]
     Indication: BIPOLAR DISORDER
     Dosage: 25 MG 1 TO 2, AT BED TIME
     Route: 048
  27. SEROQUEL [Suspect]
     Indication: MENTAL DISORDER
     Dosage: 25 MG 1 TO 2, AT BED TIME
     Route: 048
  28. SEROQUEL [Suspect]
     Indication: DEPRESSION
     Dosage: 25 MG 1 TO 2, AT BED TIME
     Route: 048
  29. SEROQUEL [Suspect]
     Indication: SLEEP DISORDER
     Dosage: 25 MG 1 TO 2, AT BED TIME
     Route: 048
  30. SEROQUEL [Suspect]
     Indication: MOOD SWINGS
     Dosage: 25 MG 1 TO 2, AT BED TIME
     Route: 048
  31. SEROQUEL [Suspect]
     Indication: BIPOLAR DISORDER
     Dosage: 50 MG IN THE MORNING, 50 MG AT LUNCH AND 200 MG AT NIGHT
     Route: 048
  32. SEROQUEL [Suspect]
     Indication: MENTAL DISORDER
     Dosage: 50 MG IN THE MORNING, 50 MG AT LUNCH AND 200 MG AT NIGHT
     Route: 048
  33. SEROQUEL [Suspect]
     Indication: DEPRESSION
     Dosage: 50 MG IN THE MORNING, 50 MG AT LUNCH AND 200 MG AT NIGHT
     Route: 048
  34. SEROQUEL [Suspect]
     Indication: SLEEP DISORDER
     Dosage: 50 MG IN THE MORNING, 50 MG AT LUNCH AND 200 MG AT NIGHT
     Route: 048
  35. SEROQUEL [Suspect]
     Indication: MOOD SWINGS
     Dosage: 50 MG IN THE MORNING, 50 MG AT LUNCH AND 200 MG AT NIGHT
     Route: 048
  36. SEROQUEL [Suspect]
     Indication: BIPOLAR DISORDER
     Dosage: SEROQUEL 100 MG TWICE DAILY AND SEROQUEL XR 200 MG AT BEDTIME
     Route: 048
  37. SEROQUEL [Suspect]
     Indication: MENTAL DISORDER
     Dosage: SEROQUEL 100 MG TWICE DAILY AND SEROQUEL XR 200 MG AT BEDTIME
     Route: 048
  38. SEROQUEL [Suspect]
     Indication: DEPRESSION
     Dosage: SEROQUEL 100 MG TWICE DAILY AND SEROQUEL XR 200 MG AT BEDTIME
     Route: 048
  39. SEROQUEL [Suspect]
     Indication: SLEEP DISORDER
     Dosage: SEROQUEL 100 MG TWICE DAILY AND SEROQUEL XR 200 MG AT BEDTIME
     Route: 048
  40. SEROQUEL [Suspect]
     Indication: MOOD SWINGS
     Dosage: SEROQUEL 100 MG TWICE DAILY AND SEROQUEL XR 200 MG AT BEDTIME
     Route: 048
  41. SEROQUEL [Suspect]
     Indication: BIPOLAR DISORDER
     Dosage: SEROQUEL 100 MG PER DAY AND SEROQUEL XR 400 MG AT HS
     Route: 048
  42. SEROQUEL [Suspect]
     Indication: MENTAL DISORDER
     Dosage: SEROQUEL 100 MG PER DAY AND SEROQUEL XR 400 MG AT HS
     Route: 048
  43. SEROQUEL [Suspect]
     Indication: DEPRESSION
     Dosage: SEROQUEL 100 MG PER DAY AND SEROQUEL XR 400 MG AT HS
     Route: 048
  44. SEROQUEL [Suspect]
     Indication: SLEEP DISORDER
     Dosage: SEROQUEL 100 MG PER DAY AND SEROQUEL XR 400 MG AT HS
     Route: 048
  45. SEROQUEL [Suspect]
     Indication: MOOD SWINGS
     Dosage: SEROQUEL 100 MG PER DAY AND SEROQUEL XR 400 MG AT HS
     Route: 048
  46. SEROQUEL [Suspect]
     Indication: BIPOLAR DISORDER
     Route: 048
  47. SEROQUEL [Suspect]
     Indication: MENTAL DISORDER
     Route: 048
  48. SEROQUEL [Suspect]
     Indication: DEPRESSION
     Route: 048
  49. SEROQUEL [Suspect]
     Indication: SLEEP DISORDER
     Route: 048
  50. SEROQUEL [Suspect]
     Indication: MOOD SWINGS
     Route: 048
  51. SEROQUEL [Suspect]
     Indication: BIPOLAR DISORDER
     Dosage: 400 DAILY
     Route: 048
  52. SEROQUEL [Suspect]
     Indication: MENTAL DISORDER
     Dosage: 400 DAILY
     Route: 048
  53. SEROQUEL [Suspect]
     Indication: DEPRESSION
     Dosage: 400 DAILY
     Route: 048
  54. SEROQUEL [Suspect]
     Indication: SLEEP DISORDER
     Dosage: 400 DAILY
     Route: 048
  55. SEROQUEL [Suspect]
     Indication: MOOD SWINGS
     Dosage: 400 DAILY
     Route: 048
  56. AMBIEN [Suspect]
  57. TIZANIDINE 4 [Concomitant]
     Dosage: 4-8 MG DAILY
  58. LAMICTIN [Concomitant]
  59. WELLBUTRIN [Concomitant]
     Indication: DEPRESSION
     Route: 048
     Dates: start: 20070118
  60. WELLBUTRIN [Concomitant]
     Indication: DEPRESSION
     Route: 048
  61. TYLENOL [Concomitant]
     Route: 048
  62. TYLENOL [Concomitant]
     Route: 048
  63. FIORICET [Concomitant]
     Indication: PAIN
     Dosage: Q 4 HOURS, PRN
     Route: 048
  64. ZOFRAN [Concomitant]
     Indication: NAUSEA
     Dosage: 4-6 MG Q8 HOURS, PRN
     Route: 042
  65. ALLOPURINOL [Concomitant]
     Route: 048
  66. ALLOPURINOL [Concomitant]
  67. NEXIUM [Concomitant]
     Route: 042
  68. LAMICTAL [Concomitant]
     Route: 048
  69. LAMICTAL [Concomitant]
     Route: 048
  70. LOVASTATIN [Concomitant]
  71. CYCLOBENZAPRINE [Concomitant]
  72. PREDNISONE [Concomitant]
  73. LORAZEPAM [Concomitant]
  74. LORAZEPAM [Concomitant]
  75. ASPIRIN [Concomitant]
  76. OMEPRAZOLE [Concomitant]
     Dosage: 1-2 TABLETS DAILY
  77. PROPRANOLOL [Concomitant]
     Route: 048
  78. ACYCLOVIR [Concomitant]
     Route: 048
  79. CALCIUM [Concomitant]
     Route: 048
  80. VITAMIN D [Concomitant]
     Route: 048
  81. MULTIVITAMINS [Concomitant]
     Route: 048
  82. MAGNESIUM [Concomitant]
     Route: 048
  83. VITAMIN B [Concomitant]
     Route: 048
  84. FISH OIL [Concomitant]
     Route: 048
  85. PERCOCET [Concomitant]
     Indication: PAIN
     Dosage: 1-2 DAILY, EVERY 4 HOURS PRN
     Route: 048
  86. DILANTIN [Concomitant]
     Route: 048
  87. PREDNISOLONE [Concomitant]

REACTIONS (30)
  - Subdural haematoma [Unknown]
  - Subarachnoid haemorrhage [Unknown]
  - Fall [Unknown]
  - Brain injury [Unknown]
  - Cognitive disorder [Unknown]
  - Skull fractured base [Unknown]
  - Skull fracture [Unknown]
  - Alcohol poisoning [Unknown]
  - Brain compression [Unknown]
  - Brain contusion [Unknown]
  - Brain midline shift [Unknown]
  - Head injury [Unknown]
  - Adverse event [Unknown]
  - Nervous system disorder [Unknown]
  - Grand mal convulsion [Unknown]
  - Agitation [Unknown]
  - Headache [Unknown]
  - Alcohol withdrawal syndrome [Unknown]
  - Sleep apnoea syndrome [Unknown]
  - Sinusitis [Unknown]
  - Insomnia [Unknown]
  - Ophthalmic herpes zoster [Unknown]
  - Eye pain [Unknown]
  - Stress [Unknown]
  - Herpes zoster [Unknown]
  - Somnolence [Unknown]
  - Somnolence [Unknown]
  - Off label use [Unknown]
  - Off label use [Unknown]
  - Drug dose omission [Unknown]
